FAERS Safety Report 26198777 (Version 1)
Quarter: 2025Q4

REPORT INFORMATION
  Report Type: Spontaneous
  Country: EU (occurrence: EU)
  Receive Date: 20251225
  Receipt Date: 20251225
  Transmission Date: 20260118
  Serious: Yes (Other)
  Sender: ABBVIE
  Company Number: EU-VIIV HEALTHCARE-PT2025EME159697

PATIENT
  Sex: Male

DRUGS (2)
  1. GLECAPREVIR\PIBRENTASVIR [Suspect]
     Active Substance: GLECAPREVIR\PIBRENTASVIR
     Indication: Hepatitis C
     Dosage: UNK
     Route: 048
     Dates: start: 202412
  2. DOVATO [Suspect]
     Active Substance: DOLUTEGRAVIR SODIUM\LAMIVUDINE
     Indication: HIV infection
     Dosage: UNK
     Route: 065
     Dates: start: 202404

REACTIONS (8)
  - Monkeypox [Unknown]
  - Secondary syphilis [Unknown]
  - Blood HIV RNA increased [Recovered/Resolved]
  - Gonococcal infection [Unknown]
  - Hepatitis C [Recovered/Resolved]
  - Urinary tract infection [Unknown]
  - Anal infection [Unknown]
  - Pharyngitis [Unknown]

NARRATIVE: CASE EVENT DATE: 20250101
